FAERS Safety Report 8451904-4 (Version None)
Quarter: 2012Q2

REPORT INFORMATION
  Report Type: 
  Country: None (occurrence: None)
  Receive Date: 20120620
  Receipt Date: 20120409
  Transmission Date: 20120825
  Serious: No
  Sender: FDA-Public Use
  Company Number: US-VERTEX PHARMACEUTICALS INC.-AE-2012-004261

PATIENT
  Sex: Male
  Weight: 77.18 kg

DRUGS (7)
  1. COPEGUS [Concomitant]
     Indication: HEPATITIS C
     Route: 048
     Dates: start: 20120305
  2. INCIVEK [Suspect]
     Indication: HEPATITIS C
     Route: 048
     Dates: start: 20120305, end: 20120312
  3. HYDROXYUREA [Concomitant]
     Indication: POLYCYTHAEMIA
  4. OMEPRAZOLE [Concomitant]
     Indication: HYPERLIPIDAEMIA
  5. PEGASYS [Concomitant]
     Indication: HEPATITIS C
     Dates: start: 20120305
  6. ANTIVERT MEDICINE [Concomitant]
     Indication: SUBCLAVIAN STEAL SYNDROME
  7. SIMVASTATIN [Concomitant]
     Indication: GASTROOESOPHAGEAL REFLUX DISEASE

REACTIONS (1)
  - RASH PAPULAR [None]
